FAERS Safety Report 14288411 (Version 1)
Quarter: 2017Q4

REPORT INFORMATION
  Report Type: Spontaneous
  Country: US (occurrence: US)
  Receive Date: 20171214
  Receipt Date: 20171214
  Transmission Date: 20180321
  Serious: Yes (Other)
  Sender: FDA-Public Use
  Company Number: US-TEIKOKU PHARMA USA-TPU2017-00785

PATIENT
  Sex: Female
  Weight: 46.76 kg

DRUGS (4)
  1. METHOCARBAMOL. [Suspect]
     Active Substance: METHOCARBAMOL
     Indication: MUSCLE RELAXANT THERAPY
     Dosage: 500 MG TABLET?1 AND 1/2 TABLETS THREE TIMES A DAY AS NEEDED
     Dates: start: 201711
  2. LIDOCAINE PATCH [Suspect]
     Active Substance: LIDOCAINE
     Indication: BACK PAIN
     Dosage: APPLY PATCH TO THE BACK BY THE TAILBONE?(AT LEAST 10,12 YEARS AGO)
     Route: 061
  3. LIDOCAINE PATCH [Suspect]
     Active Substance: LIDOCAINE
     Indication: MUSCULOSKELETAL PAIN
     Dosage: APPLY 1 PATCH TO THE NECK, FROM THE HAIRLINE TO THE SHOULDER
     Route: 061
     Dates: start: 201711
  4. OXYCODONE [Concomitant]
     Active Substance: OXYCODONE
     Indication: PAIN
     Dates: start: 2009

REACTIONS (2)
  - Spinal operation [Unknown]
  - Fatigue [Unknown]
